FAERS Safety Report 4562432-0 (Version None)
Quarter: 2005Q1

REPORT INFORMATION
  Report Type: 
  Country: None (occurrence: None)
  Receive Date: 20050124
  Receipt Date: 20050111
  Transmission Date: 20050727
  Serious: Yes (Hospitalization)
  Sender: FDA-Public Use
  Company Number: 2005-BP-00852YA

PATIENT
  Age: 47 Year
  Sex: Male

DRUGS (1)
  1. TAMSULOSIN CAPSULES (TAMSULOSIN) (NR) (TAMSULOSIN HYDROCHLORIDE) [Suspect]
     Indication: BENIGN PROSTATIC HYPERPLASIA
     Dosage: 0.4 MG
     Route: 048
     Dates: start: 20031217, end: 20031231

REACTIONS (1)
  - PANCREATITIS [None]
